FAERS Safety Report 9086982 (Version 1)
Quarter: 2013Q1

REPORT INFORMATION
  Report Type: Report from Study
  Country: US (occurrence: US)
  Receive Date: 20130130
  Receipt Date: 20130130
  Transmission Date: 20140127
  Serious: No
  Sender: FDA-Public Use
  Company Number: US-ABBOTT-12P-163-0978811-00

PATIENT
  Age: 24 Year
  Sex: Male

DRUGS (3)
  1. HUMIRA [Suspect]
     Indication: ANKYLOSING SPONDYLITIS
     Dates: start: 20120713
  2. ISONIAZID [Concomitant]
     Indication: LATENT TUBERCULOSIS
     Dosage: 300MG DAILY
  3. VITAMIN B6 [Concomitant]
     Indication: SUPPLEMENTATION THERAPY
     Dosage: 50MG DAILY

REACTIONS (3)
  - Localised oedema [Recovering/Resolving]
  - Injection site pain [Recovering/Resolving]
  - Injection site mass [Recovered/Resolved]
